FAERS Safety Report 18004334 (Version 2)
Quarter: 2020Q3

REPORT INFORMATION
  Report Type: Spontaneous
  Country: CH (occurrence: CH)
  Receive Date: 20200709
  Receipt Date: 20200825
  Transmission Date: 20201103
  Serious: Yes (Hospitalization)
  Sender: FDA-Public Use
  Company Number: CH-JNJFOC-20200515151

PATIENT
  Age: 38 Year
  Sex: Female

DRUGS (3)
  1. XARELTO [Suspect]
     Active Substance: RIVAROXABAN
     Indication: FACTOR V LEIDEN MUTATION
  2. XARELTO [Suspect]
     Active Substance: RIVAROXABAN
     Indication: LIGAMENT OPERATION
     Dosage: 15 MG, QD
     Route: 048
     Dates: start: 202005
  3. XARELTO [Suspect]
     Active Substance: RIVAROXABAN
     Indication: MENISCUS OPERATION

REACTIONS (7)
  - Joint warmth [Recovered/Resolved]
  - Arthralgia [Recovered/Resolved]
  - Haemarthrosis [Recovered/Resolved]
  - Joint swelling [Recovered/Resolved]
  - Off label use [Unknown]
  - Arthritis infective [Recovered/Resolved]
  - Joint range of motion decreased [Recovered/Resolved]

NARRATIVE: CASE EVENT DATE: 202005
